FAERS Safety Report 9770392 (Version 1)
Quarter: 2013Q4

REPORT INFORMATION
  Report Type: Spontaneous
  Country: FR (occurrence: FR)
  Receive Date: 20131218
  Receipt Date: 20131218
  Transmission Date: 20140711
  Serious: Yes (Other)
  Sender: FDA-Public Use
  Company Number: FR-BRISTOL-MYERS SQUIBB COMPANY-19897818

PATIENT
  Age: 69 Year
  Sex: Female
  Weight: 82 kg

DRUGS (8)
  1. ABILIFY TABS 15 MG [Suspect]
     Indication: DYSTHYMIC DISORDER
     Dosage: THERAPY ON 18OCT2013
     Route: 048
     Dates: start: 20130823
  2. EFFEXOR [Suspect]
     Indication: DEPRESSION
     Dosage: TABS?300MG/DAY
     Route: 048
  3. BROMAZEPAM [Concomitant]
     Indication: ANXIETY
     Dosage: TABS
     Route: 048
  4. BETASERC [Concomitant]
     Dosage: TABS
     Route: 048
  5. LEVOTHYROX [Concomitant]
     Dosage: TABS
     Route: 048
  6. AVLOCARDYL [Concomitant]
     Dosage: TABS
     Route: 048
  7. PARIET [Concomitant]
     Dosage: TABS
     Route: 048
  8. CRESTOR [Concomitant]
     Dosage: TABS
     Route: 048

REACTIONS (5)
  - Fall [Unknown]
  - Tremor [Unknown]
  - Vertigo [Unknown]
  - Confusional state [Unknown]
  - Balance disorder [Unknown]
